FAERS Safety Report 9761263 (Version 2)
Quarter: 2014Q1

REPORT INFORMATION
  Report Type: Report from Study
  Country: US (occurrence: US)
  Receive Date: 20131216
  Receipt Date: 20140109
  Transmission Date: 20141002
  Serious: Yes (Death, Hospitalization)
  Sender: FDA-Public Use
  Company Number: US-SA-2013SA129336

PATIENT
  Age: 78 Year
  Sex: Female
  Weight: 72.5 kg

DRUGS (18)
  1. CLOFARABINE [Suspect]
     Indication: ACUTE MYELOID LEUKAEMIA
     Route: 042
     Dates: start: 20111108, end: 20111112
  2. ACYCLOVIR [Concomitant]
  3. AMILORIDE [Concomitant]
  4. AMPHOTERICIN B [Concomitant]
  5. CHLOROTHIAZIDE [Concomitant]
  6. COLLAGENASE [Concomitant]
  7. ESCITALOPRAM [Concomitant]
  8. FUROSEMIDE [Concomitant]
  9. HYDROCORTISONE [Concomitant]
  10. INSULIN [Concomitant]
  11. IOPAMIDOL [Concomitant]
  12. LEVOTHYROXINE [Concomitant]
  13. EPINEPHRINE/LIDOCAINE [Concomitant]
  14. METOPROLOL [Concomitant]
  15. MORPHINE [Concomitant]
  16. PANTOPRAZOLE [Concomitant]
  17. PRIMAXIN [Concomitant]
  18. VANCOMYCIN [Concomitant]

REACTIONS (1)
  - Acute myeloid leukaemia [Fatal]
